FAERS Safety Report 21707365 (Version 1)
Quarter: 2022Q4

REPORT INFORMATION
  Report Type: Spontaneous
  Country: NL (occurrence: None)
  Receive Date: 20221209
  Receipt Date: 20221209
  Transmission Date: 20230113
  Serious: Yes (Life-Threatening, Hospitalization)
  Sender: FDA-Public Use
  Company Number: 2022A398405

PATIENT
  Sex: Male
  Weight: 80 kg

DRUGS (2)
  1. QUETIAPINE [Suspect]
     Active Substance: QUETIAPINE
     Indication: Sleep disorder
     Dosage: 12.5 MG DAILY 1 TABLET AT NIGHT.
     Route: 065
     Dates: start: 20220919, end: 20220923
  2. CARBAMAZEPINE [Concomitant]
     Active Substance: CARBAMAZEPINE
     Dosage: TABLET, 200 MG (MILLIGRAM)

REACTIONS (1)
  - Epilepsy [Recovered/Resolved]
